FAERS Safety Report 9539957 (Version 2)
Quarter: 2013Q4

REPORT INFORMATION
  Report Type: Spontaneous
  Country: JP (occurrence: JP)
  Receive Date: 20130920
  Receipt Date: 20131122
  Transmission Date: 20140711
  Serious: Yes (Other)
  Sender: FDA-Public Use
  Company Number: JP-ASTRAZENECA-2013SE69133

PATIENT
  Age: 76 Year
  Sex: Male
  Weight: 41 kg

DRUGS (4)
  1. XYLOCAINE INJECTION [Suspect]
     Indication: EPIDURAL ANAESTHESIA
     Route: 008
     Dates: start: 20130521, end: 20130521
  2. CARBOCAIN [Suspect]
     Indication: EPIDURAL ANAESTHESIA
     Dosage: DOSE UNKNOWN
     Route: 008
     Dates: start: 20130521, end: 20130521
  3. ANAPEINE [Suspect]
     Indication: POSTOPERATIVE ANALGESIA
     Dosage: DOSE UNKNOWN
     Route: 008
     Dates: start: 20130521
  4. FENTANYL [Suspect]
     Indication: POSTOPERATIVE ANALGESIA
     Dosage: DOSE UNKNOWN
     Route: 008

REACTIONS (2)
  - Monoparesis [Not Recovered/Not Resolved]
  - Spinal epidural haematoma [Recovering/Resolving]
